FAERS Safety Report 8085857-8 (Version None)
Quarter: 2012Q1

REPORT INFORMATION
  Report Type: 
  Country: None (occurrence: None)
  Receive Date: 20120128
  Receipt Date: 20110419
  Transmission Date: 20120608
  Serious: No
  Sender: FDA-Public Use
  Company Number: US-ABBOTT-11P-163-0720329-00

PATIENT
  Age: 62 Year
  Sex: Male

DRUGS (5)
  1. VITAMIN TAB [Concomitant]
     Indication: PRODUCT USED FOR UNKNOWN INDICATION
  2. DIGESTIVE ADVANTAGE [Concomitant]
     Indication: PROBIOTIC THERAPY
  3. ADALAT [Concomitant]
     Indication: PRODUCT USED FOR UNKNOWN INDICATION
  4. FISH OIL [Concomitant]
     Indication: PRODUCT USED FOR UNKNOWN INDICATION
  5. HUMIRA [Suspect]
     Indication: CROHN'S DISEASE
     Dates: start: 20101201

REACTIONS (5)
  - EYE INFECTION [None]
  - FISTULA [None]
  - DRUG INEFFECTIVE [None]
  - ARTHRALGIA [None]
  - NECK PAIN [None]
